FAERS Safety Report 18097402 (Version 1)
Quarter: 2020Q3

REPORT INFORMATION
  Report Type: Spontaneous
  Country: US (occurrence: US)
  Receive Date: 20200731
  Receipt Date: 20200731
  Transmission Date: 20201103
  Serious: No
  Sender: FDA-Public Use
  Company Number: None

PATIENT
  Age: 55 Year
  Sex: Female

DRUGS (15)
  1. PANTOPRAZOLE [Concomitant]
     Active Substance: PANTOPRAZOLE
     Dates: start: 20200214
  2. TEMAZEPAM. [Concomitant]
     Active Substance: TEMAZEPAM
     Dates: start: 20200730
  3. POTASSIUM CLORIDE MICRO [Concomitant]
     Dates: start: 20200506
  4. MIRTAZAPINE. [Concomitant]
     Active Substance: MIRTAZAPINE
     Dates: start: 20191110
  5. ALENDRONATE [Concomitant]
     Active Substance: ALENDRONATE SODIUM
     Dates: start: 20200613
  6. NIFEDIPINE. [Concomitant]
     Active Substance: NIFEDIPINE
     Dates: start: 20200214
  7. CITALOPRAM [Concomitant]
     Active Substance: CITALOPRAM HYDROBROMIDE
     Dates: start: 20200107
  8. CLONIDINE. [Concomitant]
     Active Substance: CLONIDINE
     Dates: start: 20200506
  9. ONGLYZA [Concomitant]
     Active Substance: SAXAGLIPTIN HYDROCHLORIDE
     Dates: start: 20200217
  10. QUETIAPINE. [Concomitant]
     Active Substance: QUETIAPINE
     Dates: start: 20200310
  11. TIMOLOL MAL SOL [Concomitant]
     Dates: start: 20200511
  12. CLONAZEPAM. [Concomitant]
     Active Substance: CLONAZEPAM
     Dates: start: 20200610
  13. SIMVASTATIN. [Concomitant]
     Active Substance: SIMVASTATIN
     Dates: start: 20200214
  14. PROGRAF [Suspect]
     Active Substance: TACROLIMUS
     Indication: RENAL TRANSPLANT
     Route: 048
     Dates: start: 20190916
  15. SPIRONOLACT [Concomitant]
     Active Substance: SPIRONOLACTONE
     Dates: start: 20200214

REACTIONS (1)
  - Thyroid operation [None]

NARRATIVE: CASE EVENT DATE: 20200721
